FAERS Safety Report 8586447-0 (Version None)
Quarter: 2012Q3

REPORT INFORMATION
  Report Type: 
  Country: None (occurrence: None)
  Receive Date: 20120810
  Receipt Date: 20101217
  Transmission Date: 20120928
  Serious: Yes (Death)
  Sender: FDA-Public Use
  Company Number: US-ROCHE-1099771

PATIENT
  Sex: Female

DRUGS (2)
  1. PULMOZYME [Suspect]
     Indication: CYSTIC FIBROSIS
  2. PULMOZYME [Suspect]
     Indication: CYSTIC FIBROSIS PANCREATIC
     Route: 065

REACTIONS (1)
  - DEATH [None]
